FAERS Safety Report 12060805 (Version 1)
Quarter: 2016Q1

REPORT INFORMATION
  Report Type: Spontaneous
  Country: US (occurrence: US)
  Receive Date: 20160210
  Receipt Date: 20160210
  Transmission Date: 20160526
  Serious: Yes (Other)
  Sender: FDA-Public Use
  Company Number: US-BAYER-2016-020363

PATIENT
  Age: 16 Year
  Sex: Female

DRUGS (2)
  1. ALKA-SELTZER PLUS COLD FORMULA [Suspect]
     Active Substance: ASPIRIN\CHLORPHENIRAMINE MALEATE\PHENYLEPHRINE BITARTRATE
     Indication: MULTIPLE ALLERGIES
     Dosage: 12 DF, ONCE
     Route: 048
     Dates: start: 20160131, end: 20160131
  2. ALKA-SELTZER PLUS COLD FORMULA [Suspect]
     Active Substance: ASPIRIN\CHLORPHENIRAMINE MALEATE\PHENYLEPHRINE BITARTRATE
     Indication: INTENTIONAL SELF-INJURY

REACTIONS (2)
  - Intentional overdose [None]
  - Somnolence [None]

NARRATIVE: CASE EVENT DATE: 20160131
